FAERS Safety Report 5961921-1 (Version None)
Quarter: 2008Q4

REPORT INFORMATION
  Report Type: 
  Country: None (occurrence: None)
  Receive Date: 20081121
  Receipt Date: 20081110
  Transmission Date: 20090506
  Serious: Yes (Other)
  Sender: FDA-Public Use
  Company Number: US-NOVOPROD-281228

PATIENT
  Age: 43 Year
  Sex: Male

DRUGS (1)
  1. NORDITROPIN NORDIFLEX [Suspect]
     Indication: DRUG USE FOR UNKNOWN INDICATION
     Dosage: UNKNOWN
     Dates: start: 20070101, end: 20081107

REACTIONS (2)
  - HEADACHE [None]
  - RENAL FAILURE CHRONIC [None]
